FAERS Safety Report 8282243-2 (Version None)
Quarter: 2012Q2

REPORT INFORMATION
  Report Type: 
  Country: None (occurrence: None)
  Receive Date: 20120413
  Receipt Date: 20120405
  Transmission Date: 20120825
  Serious: Yes (Hospitalization, Other)
  Sender: FDA-Public Use
  Company Number: US-BAYER-201033761NA

PATIENT
  Age: 43 Year
  Sex: Female
  Weight: 86.168 kg

DRUGS (6)
  1. DIGOXIN [Concomitant]
     Dosage: UNK
     Dates: start: 20070713
  2. YAZ [Suspect]
     Indication: CONTRACEPTION
     Dosage: UNK UNK, UNK
     Route: 048
     Dates: start: 20070507, end: 20070709
  3. DOXYCYCLINE [Concomitant]
     Indication: INFECTION
     Dosage: UNK
     Dates: start: 20070613, end: 20070701
  4. COREG [Concomitant]
     Dosage: UNK
     Dates: start: 20070713
  5. YAZ [Suspect]
  6. ALTACE [Concomitant]
     Dosage: UNK
     Dates: start: 20070713

REACTIONS (4)
  - MYOCARDIAL INFARCTION [None]
  - CHEST PAIN [None]
  - STRESS CARDIOMYOPATHY [None]
  - PULMONARY EMBOLISM [None]
